FAERS Safety Report 6055278-8 (Version None)
Quarter: 2009Q1

REPORT INFORMATION
  Report Type: 
  Country: None (occurrence: None)
  Receive Date: 20090128
  Receipt Date: 20080208
  Transmission Date: 20090719
  Serious: Yes (Death, Life-Threatening, Hospitalization)
  Sender: FDA-Public Use
  Company Number: US-BAYER-BG-2005-026681

PATIENT
  Age: 51 Year
  Sex: Male

DRUGS (7)
  1. FLUDARABINE PHOSPHATE [Suspect]
     Indication: CHRONIC LYMPHOCYTIC LEUKAEMIA
     Route: 042
     Dates: start: 20050705, end: 20051127
  2. FRESH FROZEN PLASMA [Concomitant]
     Indication: HYPOALBUMINAEMIA
     Route: 042
     Dates: start: 20051208, end: 20051208
  3. HEPARIN [Concomitant]
     Indication: ANTICOAGULANT THERAPY
     Route: 042
     Dates: start: 20051208, end: 20051209
  4. DEXTROSE 5% [Concomitant]
     Indication: POISONING
     Route: 042
     Dates: start: 20051202, end: 20051209
  5. SALINE [Concomitant]
     Indication: POISONING
     Route: 042
     Dates: start: 20051202, end: 20051209
  6. SULFAMETHOXAZOLE AND TRIMETHOPRIM [Concomitant]
     Indication: PROPHYLAXIS
     Route: 048
     Dates: start: 20050705, end: 20051208
  7. ACYCLOVIR [Concomitant]
     Indication: PROPHYLAXIS
     Route: 048
     Dates: start: 20050705, end: 20051208

REACTIONS (7)
  - BRAIN OEDEMA [None]
  - CARDIOVASCULAR INSUFFICIENCY [None]
  - ERYSIPELAS [None]
  - MALIGNANT NEOPLASM PROGRESSION [None]
  - PNEUMOCOCCAL SEPSIS [None]
  - PNEUMONIA PNEUMOCOCCAL [None]
  - RESPIRATORY FAILURE [None]
